FAERS Safety Report 15375418 (Version 5)
Quarter: 2018Q4

REPORT INFORMATION
  Report Type: Report from Study
  Country: GT (occurrence: GT)
  Receive Date: 20180912
  Receipt Date: 20181228
  Transmission Date: 20190204
  Serious: Yes (Other)
  Sender: FDA-Public Use
  Company Number: PHHY2018GT061467

PATIENT
  Sex: Female
  Weight: 54 kg

DRUGS (3)
  1. SCAPHO [Suspect]
     Active Substance: SECUKINUMAB
     Dosage: UNK
     Route: 065
  2. SCAPHO [Suspect]
     Active Substance: SECUKINUMAB
     Dosage: UNK, QMO
     Route: 065
  3. SCAPHO [Suspect]
     Active Substance: SECUKINUMAB
     Indication: RHEUMATOID ARTHRITIS
     Dosage: UNK
     Route: 065

REACTIONS (19)
  - Aphthous ulcer [Recovered/Resolved]
  - Dysbacteriosis [Unknown]
  - Dry eye [Unknown]
  - Diarrhoea infectious [Recovering/Resolving]
  - Pyrexia [Unknown]
  - Spinal pain [Unknown]
  - Irritable bowel syndrome [Recovering/Resolving]
  - Oropharyngeal pain [Unknown]
  - Gastroenteritis viral [Unknown]
  - Peripheral swelling [Unknown]
  - Pain in extremity [Unknown]
  - Depression [Unknown]
  - Speech disorder [Unknown]
  - Discomfort [Unknown]
  - Eating disorder [Unknown]
  - Sacroiliitis [Unknown]
  - Rhinorrhoea [Unknown]
  - Product use in unapproved indication [Unknown]
  - General physical health deterioration [Unknown]
